FAERS Safety Report 12336797 (Version 2)
Quarter: 2016Q2

REPORT INFORMATION
  Report Type: Spontaneous
  Country: DE (occurrence: DE)
  Receive Date: 20160505
  Receipt Date: 20160609
  Transmission Date: 20160815
  Serious: Yes (Other)
  Sender: FDA-Public Use
  Company Number: DE-JNJFOC-20160500437

PATIENT
  Age: 48 Year
  Sex: Male

DRUGS (3)
  1. FLUANXOL [Suspect]
     Active Substance: FLUPENTIXOL
     Indication: PRODUCT USED FOR UNKNOWN INDICATION
     Route: 065
     Dates: start: 20150725
  2. FLUANXOL [Suspect]
     Active Substance: FLUPENTIXOL
     Indication: PRODUCT USED FOR UNKNOWN INDICATION
     Route: 065
     Dates: start: 20150702
  3. RISPERDAL [Suspect]
     Active Substance: RISPERIDONE
     Indication: SCHIZOPHRENIA
     Route: 048
     Dates: start: 20150618

REACTIONS (5)
  - Rhabdomyolysis [Unknown]
  - Primary hyperaldosteronism [Unknown]
  - Drug ineffective [Unknown]
  - General physical health deterioration [Unknown]
  - Renal failure [Unknown]

NARRATIVE: CASE EVENT DATE: 2015
